FAERS Safety Report 6615297-7 (Version None)
Quarter: 2010Q1

REPORT INFORMATION
  Report Type: 
  Country: None (occurrence: None)
  Receive Date: 20100226
  Receipt Date: 20100212
  Transmission Date: 20100710
  Serious: Yes (Hospitalization)
  Sender: FDA-Public Use
  Company Number: 220025J10GBR

PATIENT
  Age: 15 Year
  Sex: Female

DRUGS (1)
  1. SAIZEN [Suspect]
     Indication: DRUG USE FOR UNKNOWN INDICATION
     Dosage: 1.2 MG
     Dates: start: 20090323, end: 20091201

REACTIONS (6)
  - BLOOD POTASSIUM INCREASED [None]
  - BLOOD PRESSURE DECREASED [None]
  - EAR PAIN [None]
  - FACIAL PAIN [None]
  - HEADACHE [None]
  - TOOTHACHE [None]
